FAERS Safety Report 19789174 (Version 4)
Quarter: 2022Q3

REPORT INFORMATION
  Report Type: Report from Study
  Country: US (occurrence: US)
  Receive Date: 20210904
  Receipt Date: 20220630
  Transmission Date: 20221026
  Serious: No
  Sender: FDA-Public Use
  Company Number: US-NOVARTISTESTPH-NVSC2021US200943

PATIENT
  Age: 64 Year
  Sex: Male

DRUGS (2)
  1. ENTRESTO [Suspect]
     Active Substance: SACUBITRIL\VALSARTAN
     Indication: Product used for unknown indication
     Dosage: 1 DOSAGE FORM, BID (24/26 MG)
     Route: 065
     Dates: start: 202106
  2. POTASSIUM [Suspect]
     Active Substance: POTASSIUM
     Indication: Product used for unknown indication
     Dosage: UNK
     Route: 065

REACTIONS (12)
  - Blood cholesterol increased [Unknown]
  - Pollakiuria [Recovered/Resolved]
  - Poor quality sleep [Recovered/Resolved]
  - Weight fluctuation [Recovering/Resolving]
  - Blood glucose increased [Unknown]
  - Sluggishness [Recovered/Resolved]
  - SARS-CoV-2 test positive [Recovering/Resolving]
  - Cough [Recovered/Resolved]
  - Pollakiuria [Unknown]
  - Pain [Recovered/Resolved]
  - Fluid retention [Recovering/Resolving]
  - Product dose omission issue [Unknown]

NARRATIVE: CASE EVENT DATE: 20210801
